FAERS Safety Report 10056041 (Version 4)
Quarter: 2014Q2

REPORT INFORMATION
  Report Type: Spontaneous
  Country: JP (occurrence: JP)
  Receive Date: 20140403
  Receipt Date: 20140603
  Transmission Date: 20141212
  Serious: Yes (Life-Threatening, Hospitalization)
  Sender: FDA-Public Use
  Company Number: PHHY2014JP039163

PATIENT
  Age: 71 Year
  Sex: Male
  Weight: 33 kg

DRUGS (6)
  1. CO-DIOVAN [Suspect]
     Indication: HYPERTENSION
     Dosage: 1 DF, DAILY
     Route: 048
     Dates: start: 20130822
  2. CO-DIOVAN [Suspect]
     Dosage: 1 DF, DAILY (CRUSHED VIA INFUSION TUBE)
     Route: 048
  3. CO-DIOVAN [Suspect]
     Dosage: 1 DF, DAILY
     Route: 048
  4. GLYCERIN [Suspect]
     Dosage: 60 ML, UNK
  5. FAMOTIDINE [Concomitant]
     Dosage: 2 G, UNK
     Route: 048
  6. SODIUM VALPROATE [Concomitant]
     Dosage: 4 MG, UNK
     Route: 048

REACTIONS (5)
  - Melaena [Recovered/Resolved]
  - Red blood cell count decreased [Unknown]
  - Haemoglobin decreased [Unknown]
  - Haematocrit decreased [Unknown]
  - Wrong technique in drug usage process [Unknown]
